FAERS Safety Report 12931372 (Version 1)
Quarter: 2016Q4

REPORT INFORMATION
  Report Type: Spontaneous
  Country: CA (occurrence: CA)
  Receive Date: 20161110
  Receipt Date: 20161110
  Transmission Date: 20170207
  Serious: Yes (Life-Threatening)
  Sender: FDA-Public Use
  Company Number: ALCN2016CA007604

PATIENT
  Sex: Female
  Weight: 67.12 kg

DRUGS (1)
  1. SIMBRINZA [Suspect]
     Active Substance: BRIMONIDINE TARTRATE\BRINZOLAMIDE
     Indication: INTRAOCULAR PRESSURE TEST ABNORMAL
     Dosage: 1 GTT, QD
     Route: 047

REACTIONS (9)
  - Asthenia [Unknown]
  - Heart rate decreased [Unknown]
  - Dry eye [Unknown]
  - Dry throat [Unknown]
  - Hypotension [Unknown]
  - Somnolence [Unknown]
  - Gait disturbance [Unknown]
  - Speech disorder [Unknown]
  - Listless [Unknown]
